FAERS Safety Report 20969749 (Version 1)
Quarter: 2022Q2

REPORT INFORMATION
  Report Type: Spontaneous
  Country: US (occurrence: US)
  Receive Date: 20220616
  Receipt Date: 20220616
  Transmission Date: 20220720
  Serious: No
  Sender: FDA-Public Use
  Company Number: US-JNJFOC-20220606492

PATIENT
  Age: 64 Year
  Sex: Female
  Weight: 88.45 kg

DRUGS (18)
  1. ZYRTEC [Suspect]
     Active Substance: CETIRIZINE HYDROCHLORIDE
     Indication: Food allergy
     Route: 065
  2. COVID-19 VACCINE [Concomitant]
     Indication: Prophylaxis
     Dosage: INJECTION TO UPPER LEFT ARM
     Route: 065
     Dates: start: 20210327
  3. COVID-19 VACCINE [Concomitant]
     Dosage: INJECTION TO UPPER LEFT ARM
     Route: 065
     Dates: start: 20210417
  4. COVID-19 VACCINE [Concomitant]
     Dosage: INJECTION TO UPPER LEFT ARM
     Route: 065
     Dates: start: 20210827
  5. LEVOTHYROXINE [Concomitant]
     Active Substance: LEVOTHYROXINE
     Indication: Thyroid disorder
     Route: 065
  6. NIFEDIPINE [Concomitant]
     Active Substance: NIFEDIPINE
     Indication: Product used for unknown indication
     Route: 065
  7. MODAFINIL [Concomitant]
     Active Substance: MODAFINIL
     Indication: Narcolepsy
     Dosage: SPLIT DOSE 2 DOSES BECAUSE 4MG IS THE MAX DOSE PER THE FDA
     Route: 065
  8. LOSARTAN [Concomitant]
     Active Substance: LOSARTAN
     Indication: Hypertension
     Route: 065
  9. MEMANTINE [Concomitant]
     Active Substance: MEMANTINE
     Indication: Gastrooesophageal reflux disease
     Route: 065
  10. MEMANTINE [Concomitant]
     Active Substance: MEMANTINE
     Indication: Oesophageal spasm
  11. PANTOPRAZOLE [Concomitant]
     Active Substance: PANTOPRAZOLE
     Indication: Gastrooesophageal reflux disease
     Route: 065
  12. AZELASTINE [Concomitant]
     Active Substance: AZELASTINE
     Indication: Drug therapy
     Route: 065
  13. OLOPATADINE [Concomitant]
     Active Substance: OLOPATADINE
     Indication: Drug therapy
     Route: 065
  14. FAMOTIDINE [Concomitant]
     Active Substance: FAMOTIDINE
     Indication: Gastrooesophageal reflux disease
     Route: 065
  15. NICOTINE [Concomitant]
     Active Substance: NICOTINE
     Indication: Restless legs syndrome
     Dosage: 14MG PATCH WORN DURING WAKING HOURS, PEELS OFF 1 HOUR BEFORE SLEEP
     Route: 061
  16. CLONAZEPAM [Concomitant]
     Active Substance: CLONAZEPAM
     Indication: Product used for unknown indication
     Dosage: 2 LITTLE BLUE PILLS, THINKS IT^S 2MG; COULD TAKE 1.5 BUT 2 WORKS BETTER, NOW ON 2MG
     Route: 065
  17. MELATONIN [Concomitant]
     Active Substance: MELATONIN
     Indication: Product used for unknown indication
     Dosage: 15MG PRETTY HIGH DOSE AND THE DOCTOR^S RECOMMENDATION IS NO MORE THAN THAT
     Route: 065
  18. CROMOLYN [Concomitant]
     Active Substance: CROMOLYN
     Indication: Food intolerance
     Route: 065

REACTIONS (4)
  - Overdose [Unknown]
  - Inappropriate schedule of product administration [Unknown]
  - Intentional product misuse [Unknown]
  - Product use in unapproved indication [Unknown]
